FAERS Safety Report 8384687-7 (Version None)
Quarter: 2012Q2

REPORT INFORMATION
  Report Type: 
  Country: None (occurrence: None)
  Receive Date: 20120524
  Receipt Date: 20120514
  Transmission Date: 20120825
  Serious: Yes (Other)
  Sender: FDA-Public Use
  Company Number: US-ELI_LILLY_AND_COMPANY-US201101000614

PATIENT
  Sex: Female

DRUGS (8)
  1. DILANTIN [Concomitant]
     Dosage: 100 MG, BID
  2. DIOVAN [Concomitant]
     Dosage: 12.5 DF, UNK
  3. FORTEO [Suspect]
     Dosage: 20 UG, QD
     Route: 065
  4. FORTEO [Suspect]
     Dosage: 20 UG, QD
  5. FORTEO [Suspect]
     Dosage: 20 UG, QD
  6. HYDROCODONE [Concomitant]
  7. XANAX [Concomitant]
     Dosage: 0.5 DF, UNK
  8. FORTEO [Suspect]
     Indication: OSTEOPOROSIS
     Dosage: 20 UG, QD
     Route: 065
     Dates: start: 20101201

REACTIONS (10)
  - MALAISE [None]
  - WEIGHT INCREASED [None]
  - INTERVERTEBRAL DISC DISORDER [None]
  - MEDICATION ERROR [None]
  - SPINAL FRACTURE [None]
  - BONE PAIN [None]
  - EMOTIONAL DISTRESS [None]
  - ARTHRALGIA [None]
  - DIZZINESS [None]
  - CONVULSION [None]
